FAERS Safety Report 15392482 (Version 1)
Quarter: 2018Q3

REPORT INFORMATION
  Report Type: Report from Study
  Country: BR (occurrence: BR)
  Receive Date: 20180917
  Receipt Date: 20180917
  Transmission Date: 20181010
  Serious: Yes (Hospitalization, Other)
  Sender: FDA-Public Use
  Company Number: BR-BRISTOL-MYERS SQUIBB COMPANY-BMS-2018-084776

PATIENT
  Sex: Male

DRUGS (2)
  1. APIXABAN [Suspect]
     Active Substance: APIXABAN
     Indication: PRODUCT USED FOR UNKNOWN INDICATION
     Dosage: 5 MG, UNK
     Route: 065
     Dates: start: 2015
  2. APIXABAN [Suspect]
     Active Substance: APIXABAN
     Indication: PRODUCT USED FOR UNKNOWN INDICATION
     Dosage: 2.5 MG, UNK
     Route: 065

REACTIONS (8)
  - Dependence on oxygen therapy [Unknown]
  - Pleural effusion [Unknown]
  - Pneumocystis jirovecii pneumonia [Unknown]
  - Gait inability [Not Recovered/Not Resolved]
  - Renal injury [Unknown]
  - Arthritis bacterial [Unknown]
  - Gallbladder injury [Unknown]
  - Cardiac disorder [Not Recovered/Not Resolved]
